FAERS Safety Report 6896596-0 (Version None)
Quarter: 2010Q3

REPORT INFORMATION
  Report Type: 
  Country: None (occurrence: None)
  Receive Date: 20100802
  Receipt Date: 20070118
  Transmission Date: 20110219
  Serious: No
  Sender: FDA-Public Use
  Company Number: US-PFIZER INC-2006078740

PATIENT
  Sex: Female
  Weight: 86.18 kg

DRUGS (3)
  1. LYRICA [Suspect]
     Indication: POST HERPETIC NEURALGIA
     Route: 048
     Dates: start: 20060301
  2. TRICOR [Concomitant]
     Dates: end: 20060501
  3. ACTOS [Concomitant]
     Dates: end: 20060501

REACTIONS (1)
  - ALOPECIA [None]
